FAERS Safety Report 11198363 (Version 2)
Quarter: 2015Q3

REPORT INFORMATION
  Report Type: Spontaneous
  Country: US (occurrence: US)
  Receive Date: 20150618
  Receipt Date: 20150707
  Transmission Date: 20151125
  Serious: Yes (Hospitalization, Other)
  Sender: FDA-Public Use
  Company Number: US-MERCK-1506USA006600

PATIENT
  Age: 29 Year
  Sex: Male

DRUGS (3)
  1. VIDAZA [Suspect]
     Active Substance: AZACITIDINE
     Dosage: UNK
  2. VFEND [Suspect]
     Active Substance: VORICONAZOLE
     Dosage: 400 MG DAILY
     Route: 048
  3. NOXAFIL [Suspect]
     Active Substance: POSACONAZOLE
     Dosage: UNK
     Route: 048

REACTIONS (16)
  - Haematocrit decreased [Unknown]
  - Monocyte count increased [Unknown]
  - Haemoglobin decreased [Unknown]
  - Blood albumin decreased [Unknown]
  - Enterococcus test positive [Unknown]
  - Sinus tachycardia [Unknown]
  - Platelet count decreased [Unknown]
  - Hospitalisation [Recovered/Resolved]
  - Febrile neutropenia [Unknown]
  - Gingival bleeding [Unknown]
  - Gastrointestinal haemorrhage [Recovered/Resolved]
  - Acute myeloid leukaemia [Unknown]
  - Pseudomonas test positive [Unknown]
  - Stenotrophomonas test positive [Unknown]
  - Enterobacter test positive [Unknown]
  - Tongue disorder [Unknown]

NARRATIVE: CASE EVENT DATE: 2015
